FAERS Safety Report 23494354 (Version 2)
Quarter: 2024Q1

REPORT INFORMATION
  Report Type: Report from Study
  Country: US (occurrence: US)
  Receive Date: 20240207
  Receipt Date: 20240215
  Transmission Date: 20240410
  Serious: Yes (Death, Other)
  Sender: FDA-Public Use
  Company Number: US-002147023-NVSC2024US026653

PATIENT
  Age: 80 Year
  Sex: Female

DRUGS (1)
  1. TASIGNA [Suspect]
     Active Substance: NILOTINIB
     Indication: Chronic myeloid leukaemia
     Dosage: 200 MG, BID
     Route: 065

REACTIONS (4)
  - Malaise [Fatal]
  - Pain [Unknown]
  - Fear of death [Unknown]
  - Incorrect dose administered [Unknown]

NARRATIVE: CASE EVENT DATE: 20240101
